FAERS Safety Report 17458886 (Version 1)
Quarter: 2020Q1

REPORT INFORMATION
  Report Type: Spontaneous
  Country: FR (occurrence: FR)
  Receive Date: 20200225
  Receipt Date: 20200225
  Transmission Date: 20200409
  Serious: Yes (Hospitalization)
  Sender: FDA-Public Use
  Company Number: FR-BIOGEN-2014BI039923

PATIENT
  Sex: Male
  Weight: 54 kg

DRUGS (2)
  1. GABAPENTINE 400 [Concomitant]
     Indication: NEURALGIA
     Route: 048
     Dates: start: 20120719
  2. TYSABRI [Suspect]
     Active Substance: NATALIZUMAB
     Indication: RELAPSING-REMITTING MULTIPLE SCLEROSIS
     Dosage: 52 DOSES
     Route: 042
     Dates: start: 20091228, end: 20140321

REACTIONS (1)
  - Multiple sclerosis [Recovered/Resolved]
